FAERS Safety Report 10730314 (Version 1)
Quarter: 2015Q1

REPORT INFORMATION
  Report Type: Spontaneous
  Country: US (occurrence: US)
  Receive Date: 20150122
  Receipt Date: 20150122
  Transmission Date: 20150721
  Serious: No
  Sender: FDA-Public Use
  Company Number: US-GLAXOSMITHKLINE-US2014040293

PATIENT
  Age: 54 Year
  Sex: Female

DRUGS (2)
  1. LIP BALM [Concomitant]
     Active Substance: AVOBENZONE\DIMETHICONE\OCTINOXATE\OXYBENZONE\ZINC OXIDE
  2. ABREVA [Suspect]
     Active Substance: DOCOSANOL
     Indication: ORAL HERPES
     Route: 061

REACTIONS (1)
  - Drug administration error [Recovered/Resolved]
